FAERS Safety Report 11719807 (Version 1)
Quarter: 2015Q4

REPORT INFORMATION
  Report Type: Report from Study
  Country: US (occurrence: US)
  Receive Date: 20151110
  Receipt Date: 20151110
  Transmission Date: 20160304
  Serious: Yes (Hospitalization)
  Sender: FDA-Public Use
  Company Number: US-ROCHE-1653040

PATIENT
  Age: 68 Year
  Sex: Female
  Weight: 76.3 kg

DRUGS (7)
  1. TRASTUZUMAB [Suspect]
     Active Substance: TRASTUZUMAB
     Indication: INVASIVE BREAST CARCINOMA
     Dosage: LOADING DOSE OVER 90MIN ON DAY 1
     Route: 042
     Dates: start: 20150603
  2. CARBOPLATIN. [Suspect]
     Active Substance: CARBOPLATIN
     Indication: INVASIVE BREAST CARCINOMA
     Dosage: AUC 6MG/ML/MIN IV OVER  30-60 MIN?DATE OF LAST DOSE PRIOR TO AE 15/JUL/2015
     Route: 042
     Dates: start: 20150603
  3. ARIMIDEX [Concomitant]
     Active Substance: ANASTROZOLE
     Indication: INVASIVE BREAST CARCINOMA
     Route: 048
     Dates: start: 20150603
  4. PERTUZUMAB [Suspect]
     Active Substance: PERTUZUMAB
     Dosage: MAINTENANCE DOSE ?30-60 MIN ON DAY 1?DATE OF LAST DOSE PRIOR TO AE 15/JUL/2015
     Route: 042
  5. PERTUZUMAB [Suspect]
     Active Substance: PERTUZUMAB
     Indication: INVASIVE BREAST CARCINOMA
     Dosage: LOADING DOSE?OVER 60 MIN ON DAY 1
     Route: 042
     Dates: start: 20150603
  6. DOCETAXEL. [Suspect]
     Active Substance: DOCETAXEL
     Indication: INVASIVE BREAST CARCINOMA
     Dosage: OVER 60 MIN.?DATE OF LAST DOSE PRIOR TO AE 15/JUL/2015
     Route: 042
     Dates: start: 20150603
  7. TRASTUZUMAB [Suspect]
     Active Substance: TRASTUZUMAB
     Dosage: MAINTENANCE DOSE (OVER 30 TO 60 MIN).?DATE OF LAST DOSE PRIOR TO AE 15/JUL/2015.
     Route: 042

REACTIONS (2)
  - Anaemia [Recovered/Resolved]
  - Hypokalaemia [Recovered/Resolved]

NARRATIVE: CASE EVENT DATE: 20150804
